FAERS Safety Report 7983099-5 (Version None)
Quarter: 2011Q4

REPORT INFORMATION
  Report Type: 
  Country: None (occurrence: None)
  Receive Date: 20111215
  Receipt Date: 20111210
  Transmission Date: 20120403
  Serious: No
  Sender: FDA-Public Use
  Company Number: US-B.I. PHARMACEUTICALS,INC./RIDGEFIELD-2011-BP-27828BP

PATIENT
  Sex: Female

DRUGS (2)
  1. PRADAXA [Suspect]
     Indication: ATRIAL FIBRILLATION
     Dates: start: 20111101
  2. METOPROLOL TARTRATE [Concomitant]

REACTIONS (4)
  - SWELLING FACE [None]
  - CHEST PAIN [None]
  - EYELID OEDEMA [None]
  - PRURITUS [None]
